FAERS Safety Report 17241757 (Version 2)
Quarter: 2024Q3

REPORT INFORMATION
  Report Type: Spontaneous
  Country: FR (occurrence: FR)
  Receive Date: 20200107
  Receipt Date: 20240715
  Transmission Date: 20241017
  Serious: Yes (Hospitalization, Other)
  Sender: PFIZER
  Company Number: None

PATIENT
  Age: 30 Year
  Sex: Male
  Weight: 74 kg

DRUGS (8)
  1. ADCETRIS [Suspect]
     Active Substance: BRENTUXIMAB VEDOTIN
     Indication: Hodgkin^s disease
     Dosage: 138.60 MG (PER CURE)
     Route: 041
     Dates: start: 20191107, end: 20191114
  2. DOXORUBICIN [Suspect]
     Active Substance: DOXORUBICIN
     Indication: Hodgkin^s disease
     Dosage: 48 MG (PER CURE)
     Route: 041
     Dates: start: 20190710, end: 20191024
  3. DOXORUBICIN [Suspect]
     Active Substance: DOXORUBICIN
     Dosage: 28.80 MG (PER CURE)
     Route: 041
     Dates: start: 2019, end: 20191114
  4. NAVELBINE [Suspect]
     Active Substance: VINORELBINE TARTRATE
     Indication: Hodgkin^s disease
     Dosage: 38.4 MG (PER CURE)
     Route: 041
     Dates: start: 20191107, end: 20191114
  5. BLEOMYCIN SULFATE [Suspect]
     Active Substance: BLEOMYCIN SULFATE
     Indication: Hodgkin^s disease
     Dosage: 19.20 MG (PER CURE)
     Route: 041
     Dates: start: 20190710, end: 20190923
  6. VINBLASTINE SULFATE [Suspect]
     Active Substance: VINBLASTINE SULFATE
     Indication: Hodgkin^s disease
     Dosage: 11.52 MG (PER CURE)
     Route: 041
     Dates: start: 20190710, end: 20191024
  7. DACARBAZINE [Suspect]
     Active Substance: DACARBAZINE
     Indication: Hodgkin^s disease
     Dosage: 720 MG (PER CURE)
     Route: 041
     Dates: start: 20190710, end: 20191024
  8. GEMCITABINE\GEMCITABINE HYDROCHLORIDE [Suspect]
     Active Substance: GEMCITABINE\GEMCITABINE HYDROCHLORIDE
     Indication: Hodgkin^s disease
     Dosage: 1920 MG (PER CURE)
     Route: 041
     Dates: start: 20191107, end: 20191114

REACTIONS (1)
  - Interstitial lung disease [Recovered/Resolved]

NARRATIVE: CASE EVENT DATE: 20191121
